FAERS Safety Report 13205620 (Version 1)
Quarter: 2017Q1

REPORT INFORMATION
  Report Type: Spontaneous
  Country: US (occurrence: US)
  Receive Date: 20170208
  Receipt Date: 20170208
  Transmission Date: 20170428
  Serious: Yes (Hospitalization)
  Sender: FDA-Public Use
  Company Number: None

PATIENT
  Age: 75 Year
  Sex: Female

DRUGS (18)
  1. LACTAID [Concomitant]
     Active Substance: LACTASE
  2. PROBIOTIC [Concomitant]
     Active Substance: PROBIOTICS NOS
  3. LEVOTHYROXINE. [Concomitant]
     Active Substance: LEVOTHYROXINE
  4. AMOXICILLIN. [Concomitant]
     Active Substance: AMOXICILLIN
  5. LEUCOVOR [Concomitant]
  6. CALCIUM/D [Concomitant]
  7. NORCO [Concomitant]
     Active Substance: ACETAMINOPHEN\HYDROCODONE BITARTRATE
  8. VENTOLIN [Concomitant]
     Active Substance: ALBUTEROL SULFATE
  9. XELJANZ [Suspect]
     Active Substance: TOFACITINIB CITRATE
     Indication: RHEUMATOID ARTHRITIS
     Route: 048
     Dates: start: 20160627
  10. ACETAMINOPHEN. [Concomitant]
     Active Substance: ACETAMINOPHEN
  11. SPIRIVA [Concomitant]
     Active Substance: TIOTROPIUM BROMIDE MONOHYDRATE
  12. MAGNESIUM [Concomitant]
     Active Substance: MAGNESIUM
  13. PRILOSEC [Concomitant]
     Active Substance: OMEPRAZOLE MAGNESIUM
  14. BONIVA [Concomitant]
     Active Substance: IBANDRONATE SODIUM
  15. CELEBREX [Concomitant]
     Active Substance: CELECOXIB
  16. CLARITIN [Concomitant]
     Active Substance: LORATADINE
  17. ADVAIR HFA [Concomitant]
     Active Substance: FLUTICASONE PROPIONATE\SALMETEROL XINAFOATE
  18. CENTRUM [Concomitant]
     Active Substance: VITAMINS

REACTIONS (2)
  - Drug dose omission [None]
  - Limb operation [None]

NARRATIVE: CASE EVENT DATE: 20170125
